FAERS Safety Report 5879258-8 (Version None)
Quarter: 2008Q3

REPORT INFORMATION
  Report Type: 
  Country: None (occurrence: None)
  Receive Date: 20080912
  Receipt Date: 20080729
  Transmission Date: 20090109
  Serious: No
  Sender: FDA-Public Use
  Company Number: US-BAYER-200825534NA

PATIENT
  Age: 44 Year
  Sex: Male

DRUGS (15)
  1. LEVITRA [Suspect]
     Indication: ERECTILE DYSFUNCTION
     Dosage: TOTAL DAILY DOSE: 10 MG  UNIT DOSE: 10 MG
     Route: 048
     Dates: start: 20070201
  2. MORPHINE [Concomitant]
  3. VICODIN [Concomitant]
  4. CODEINE SUL TAB [Concomitant]
  5. INSULIN [Concomitant]
  6. SYNTHROID [Concomitant]
  7. ALTACE [Concomitant]
  8. PROVIGIL [Concomitant]
  9. EFFEXOR [Concomitant]
  10. TOPAMAX [Concomitant]
  11. ZOLOFT [Concomitant]
  12. STRATTERA [Concomitant]
  13. PHENERGAN HCL [Concomitant]
  14. BUSPIRONE HCL [Concomitant]
  15. TRILEPTAL [Concomitant]

REACTIONS (1)
  - ERECTILE DYSFUNCTION [None]
